FAERS Safety Report 5751333-8 (Version None)
Quarter: 2008Q2

REPORT INFORMATION
  Report Type: 
  Country: None (occurrence: None)
  Receive Date: 20080528
  Receipt Date: 20080516
  Transmission Date: 20081010
  Serious: Yes (Other)
  Sender: FDA-Public Use
  Company Number: FR-PFIZER INC-2008042708

PATIENT
  Age: 86 Year
  Sex: Female

DRUGS (6)
  1. LYRICA [Suspect]
     Indication: NEURALGIA
  2. ATACAND [Concomitant]
  3. VASTAREL [Concomitant]
  4. LORAZEPAM [Concomitant]
  5. TRANSIPEG [Concomitant]
  6. SPAGULAX [Concomitant]

REACTIONS (2)
  - FACE OEDEMA [None]
  - HYPERTENSION [None]
